FAERS Safety Report 4320544-0 (Version None)
Quarter: 2004Q1

REPORT INFORMATION
  Report Type: 
  Country: None (occurrence: None)
  Receive Date: 20040315
  Receipt Date: 20040209
  Transmission Date: 20041129
  Serious: Yes (Hospitalization)
  Sender: FDA-Public Use
  Company Number: 2004198261US

PATIENT
  Age: 81 Year
  Sex: Male

DRUGS (4)
  1. BEXTRA [Suspect]
     Indication: OSTEOARTHRITIS
     Dosage: 10 MG, QD, ORAL
     Route: 048
     Dates: start: 20030502, end: 20030512
  2. GABAPENTIN [Concomitant]
  3. ALBUTEROL [Concomitant]
  4. GALANTAMINE (GALANTAMINE0 [Concomitant]

REACTIONS (2)
  - MELAENA [None]
  - ORTHOSTATIC HYPOTENSION [None]
